FAERS Safety Report 10180172 (Version 1)
Quarter: 2014Q2

REPORT INFORMATION
  Report Type: Spontaneous
  Country: US (occurrence: US)
  Receive Date: 20140519
  Receipt Date: 20140519
  Transmission Date: 20141212
  Serious: No
  Sender: FDA-Public Use
  Company Number: US-AMGEN INC.-USASP2013077690

PATIENT
  Age: 72 Year
  Sex: Female

DRUGS (2)
  1. PROLIA [Suspect]
     Indication: PRODUCT USED FOR UNKNOWN INDICATION
     Dosage: UNK
     Route: 065
  2. VITAMIN D                          /00107901/ [Concomitant]
     Dosage: UNK
     Route: 065

REACTIONS (6)
  - Inflammation [Recovered/Resolved]
  - Fall [Unknown]
  - Arthritis [Unknown]
  - Joint injury [Unknown]
  - Immunisation reaction [Unknown]
  - Inappropriate schedule of drug administration [Unknown]
